FAERS Safety Report 9613334 (Version 2)
Quarter: 2013Q3

REPORT INFORMATION
  Report Type: Spontaneous
  Country: GB (occurrence: None)
  Receive Date: 20130927
  Receipt Date: 20130930
  Transmission Date: 20140515
  Serious: Yes (Other)
  Sender: FDA-Public Use
  Company Number: 2013037018

PATIENT
  Age: 26 Year
  Sex: Female

DRUGS (1)
  1. HIZENTRA (IMMUNOGLOBULIN HUMAN NORMAL) [Suspect]
     Indication: IMMUNODEFICIENCY COMMON VARIABLE
     Dosage: 6 G, 6 G DIVIDED INTO 4 SITES 10 ML AN HOUR PER SITE
     Route: 058
     Dates: start: 20130605, end: 20130605

REACTIONS (13)
  - Angioedema [None]
  - Headache [None]
  - Malaise [None]
  - Nausea [None]
  - Pruritus [None]
  - Fatigue [None]
  - Pain [None]
  - Vomiting [None]
  - Administration site reaction [None]
  - Local swelling [None]
  - Infusion related reaction [None]
  - Malaise [None]
  - Asthenia [None]
